FAERS Safety Report 19110814 (Version 5)
Quarter: 2022Q3

REPORT INFORMATION
  Report Type: Spontaneous
  Country: US (occurrence: US)
  Receive Date: 20210408
  Receipt Date: 20220708
  Transmission Date: 20221027
  Serious: Yes (Other)
  Sender: FDA-Public Use
  Company Number: US-PFIZER INC-2021081051

PATIENT
  Age: 68 Year
  Sex: Female

DRUGS (2)
  1. IBRANCE [Suspect]
     Active Substance: PALBOCICLIB
     Indication: Neoplasm malignant
     Dosage: 125 MG
     Dates: start: 20220125
  2. IBRANCE [Suspect]
     Active Substance: PALBOCICLIB
     Indication: Breast cancer female

REACTIONS (15)
  - Pulmonary congestion [Unknown]
  - Pruritus [Unknown]
  - Dry skin [Unknown]
  - Memory impairment [Unknown]
  - Hot flush [Unknown]
  - Hyperhidrosis [Unknown]
  - Lymphoedema [Unknown]
  - Fatigue [Unknown]
  - Asthenia [Unknown]
  - Depressed mood [Unknown]
  - Bone pain [Unknown]
  - Pain in extremity [Unknown]
  - Stress [Unknown]
  - Intentional product misuse [Unknown]
  - Malaise [Unknown]
